FAERS Safety Report 18083848 (Version 1)
Quarter: 2020Q3

REPORT INFORMATION
  Report Type: Spontaneous
  Country: CN (occurrence: CN)
  Receive Date: 20200728
  Receipt Date: 20200728
  Transmission Date: 20201103
  Serious: Yes (Other)
  Sender: FDA-Public Use
  Company Number: CN-ROCHE-2646938

PATIENT
  Age: 36 Year
  Sex: Female

DRUGS (8)
  1. XELODA [Suspect]
     Active Substance: CAPECITABINE
     Indication: INVASIVE BREAST CARCINOMA
     Dosage: 1.5G IN MORNING, 1.0G IN EVENING
     Route: 048
     Dates: start: 20200403
  2. VINORELBINE [Suspect]
     Active Substance: VINORELBINE TARTRATE
     Indication: INVASIVE BREAST CARCINOMA
     Dosage: 40MG ON DAY1, 30MG ON DAY 8
     Route: 041
     Dates: start: 20200403
  3. PACLITAXEL LIPOSOME [Concomitant]
     Active Substance: PACLITAXEL
     Indication: INVASIVE BREAST CARCINOMA
     Dates: start: 20191107
  4. HERCEPTIN [Suspect]
     Active Substance: TRASTUZUMAB
     Indication: INVASIVE BREAST CARCINOMA
     Route: 065
     Dates: start: 20191206
  5. PERJETA [Suspect]
     Active Substance: PERTUZUMAB
     Indication: INVASIVE BREAST CARCINOMA
     Route: 065
     Dates: start: 20200120
  6. XELODA [Suspect]
     Active Substance: CAPECITABINE
     Dosage: 1.5G IN MORNING, 1.0G IN EVENING
     Route: 048
     Dates: start: 20200522
  7. DOCETAXEL. [Suspect]
     Active Substance: DOCETAXEL
     Indication: INVASIVE BREAST CARCINOMA
     Route: 041
     Dates: start: 20191206
  8. CARBOPLATIN. [Concomitant]
     Active Substance: CARBOPLATIN
     Indication: INVASIVE BREAST CARCINOMA
     Route: 041
     Dates: start: 20191206

REACTIONS (5)
  - Myelosuppression [Unknown]
  - Asthenia [Unknown]
  - Neurotoxicity [Unknown]
  - Alopecia [Unknown]
  - Diarrhoea [Unknown]
